FAERS Safety Report 4303505-7 (Version None)
Quarter: 2004Q1

REPORT INFORMATION
  Report Type: 
  Country: None (occurrence: None)
  Receive Date: 20040223
  Receipt Date: 20040218
  Transmission Date: 20041129
  Serious: Yes (Other)
  Sender: FDA-Public Use
  Company Number: 200401007

PATIENT
  Age: 37 Year
  Sex: Female

DRUGS (6)
  1. IMODIUM [Suspect]
     Indication: CLOSTRIDIUM COLITIS
     Dosage: 2 MG TID/ THEN 6X/DAY
     Route: 048
     Dates: start: 20031229, end: 20031230
  2. BUSCOPAN [Suspect]
     Indication: CLOSTRIDIUM COLITIS
     Dates: start: 20031229, end: 20040102
  3. FORTECORTIN [Concomitant]
  4. DAUNORUBICIN HCL [Concomitant]
  5. ARA-CELL [Concomitant]
  6. DEXAMETHASONE [Concomitant]

REACTIONS (3)
  - CONDITION AGGRAVATED [None]
  - FLATULENCE [None]
  - TOXIC DILATATION OF COLON [None]
